FAERS Safety Report 4947235-7 (Version None)
Quarter: 2006Q1

REPORT INFORMATION
  Report Type: 
  Country: None (occurrence: None)
  Receive Date: 20060313
  Receipt Date: 20060227
  Transmission Date: 20060701
  Serious: Yes (Other)
  Sender: FDA-Public Use
  Company Number: HQWYE044228FEB06

PATIENT
  Sex: Male

DRUGS (2)
  1. PROTONIX [Suspect]
     Indication: HAEMORRHAGE
     Dosage: INTRAVENOUS; 40 MG, CONTINUOUS DRIP, INTRAVENOUS
     Route: 042
  2. PROTONIX [Suspect]
     Indication: ULCER
     Dosage: INTRAVENOUS; 40 MG, CONTINUOUS DRIP, INTRAVENOUS
     Route: 042

REACTIONS (2)
  - BRAIN OEDEMA [None]
  - DELIRIUM [None]
